FAERS Safety Report 10196378 (Version 1)
Quarter: 2014Q2

REPORT INFORMATION
  Report Type: Report from Study
  Country: TW (occurrence: TW)
  Receive Date: 20140527
  Receipt Date: 20140527
  Transmission Date: 20141212
  Serious: Yes (Hospitalization)
  Sender: FDA-Public Use
  Company Number: TW-SA-2014SA065106

PATIENT
  Age: 8 Year
  Sex: Male
  Weight: 29.8 kg

DRUGS (1)
  1. MYOZYME [Suspect]
     Indication: GLYCOGEN STORAGE DISEASE TYPE II
     Route: 042
     Dates: start: 20021220

REACTIONS (14)
  - Pseudomonas infection [Recovered/Resolved]
  - Pyrexia [Recovered/Resolved]
  - Sputum increased [Recovered/Resolved]
  - Oxygen saturation decreased [Recovered/Resolved]
  - Cough [Recovered/Resolved]
  - Otitis externa [Unknown]
  - Pneumonia [Recovered/Resolved]
  - Respiratory failure [Recovered/Resolved]
  - Mastoiditis [Recovered/Resolved]
  - Sinusitis [Recovered/Resolved]
  - Mastoiditis [Recovered/Resolved]
  - Otitis media [Recovered/Resolved]
  - Mastoiditis [Recovered/Resolved]
  - Respiratory distress [Unknown]
